FAERS Safety Report 6507950-0 (Version None)
Quarter: 2009Q4

REPORT INFORMATION
  Report Type: 
  Country: None (occurrence: None)
  Receive Date: 20091221
  Receipt Date: 20091215
  Transmission Date: 20100525
  Serious: Yes (Life-Threatening, Hospitalization)
  Sender: FDA-Public Use
  Company Number: B0615544A

PATIENT
  Sex: Male

DRUGS (1)
  1. CLAMOXYL [Suspect]
     Route: 048
     Dates: start: 20090130, end: 20090130

REACTIONS (11)
  - ANAPHYLACTIC SHOCK [None]
  - CHEST PAIN [None]
  - LOSS OF CONSCIOUSNESS [None]
  - MALAISE [None]
  - MYOCARDIAL INFARCTION [None]
  - NAUSEA [None]
  - RASH [None]
  - SELF-MEDICATION [None]
  - VENTRICULAR FIBRILLATION [None]
  - VENTRICULAR TACHYCARDIA [None]
  - VOMITING [None]
